FAERS Safety Report 13897678 (Version 1)
Quarter: 2017Q3

REPORT INFORMATION
  Report Type: Spontaneous
  Country: US (occurrence: US)
  Receive Date: 20170823
  Receipt Date: 20170823
  Transmission Date: 20171127
  Serious: Yes (Other)
  Sender: FDA-Public Use
  Company Number: US-BAYER-2017-157617

PATIENT
  Age: 71 Year
  Sex: Female

DRUGS (1)
  1. ESTRADIOL. [Suspect]
     Active Substance: ESTRADIOL
     Indication: POSTMENOPAUSE
     Route: 062

REACTIONS (4)
  - Product quality issue [None]
  - Postmenopausal haemorrhage [Recovered/Resolved]
  - Drug dose omission [Unknown]
  - Product adhesion issue [None]

NARRATIVE: CASE EVENT DATE: 201708
